FAERS Safety Report 4879141-0 (Version None)
Quarter: 2006Q1

REPORT INFORMATION
  Report Type: 
  Country: None (occurrence: None)
  Receive Date: 20060112
  Receipt Date: 20060102
  Transmission Date: 20060701
  Serious: Yes (Hospitalization)
  Sender: FDA-Public Use
  Company Number: FR-ROCHE-430552

PATIENT
  Age: 55 Year
  Sex: Male

DRUGS (2)
  1. ROCEPHIN [Suspect]
     Indication: BRAIN ABSCESS
     Route: 042
     Dates: start: 20051107, end: 20051203
  2. FLAGYL [Suspect]
     Indication: BRAIN ABSCESS
     Route: 048
     Dates: start: 20051108, end: 20051203

REACTIONS (3)
  - PRURITUS [None]
  - RASH MACULO-PAPULAR [None]
  - TOXIC SKIN ERUPTION [None]
